FAERS Safety Report 10378887 (Version 2)
Quarter: 2014Q3

REPORT INFORMATION
  Report Type: Report from Study
  Country: AR (occurrence: AR)
  Receive Date: 20140812
  Receipt Date: 20140812
  Transmission Date: 20150326
  Serious: Yes (Death)
  Sender: FDA-Public Use
  Company Number: AR-BRISTOL-MYERS SQUIBB COMPANY-19871318

PATIENT
  Age: 55 Year
  Sex: Female

DRUGS (1)
  1. IXEMPRA [Suspect]
     Active Substance: IXABEPILONE
     Indication: BREAST CANCER
     Dosage: 1DF=1 VIAL OF 45 MG.?FREQUENCY: 21 DAYS
     Dates: start: 20130613

REACTIONS (1)
  - Death [Fatal]

NARRATIVE: CASE EVENT DATE: 20131126
